FAERS Safety Report 5323726-4 (Version None)
Quarter: 2007Q2

REPORT INFORMATION
  Report Type: 
  Country: None (occurrence: None)
  Receive Date: 20070514
  Receipt Date: 20070508
  Transmission Date: 20071010
  Serious: Yes (Hospitalization)
  Sender: FDA-Public Use
  Company Number: ES-AVENTIS-200713671GDDC

PATIENT
  Age: 65 Year
  Sex: Male
  Weight: 93 kg

DRUGS (4)
  1. DOCETAXEL [Suspect]
     Route: 042
     Dates: start: 20070416, end: 20070416
  2. CISPLATIN [Suspect]
     Route: 042
     Dates: start: 20070416, end: 20070416
  3. FLUOROURACIL [Suspect]
     Dates: start: 20070416, end: 20070420
  4. AMERIDE                            /00206601/ [Concomitant]
     Indication: HYPERTENSION
     Route: 048

REACTIONS (5)
  - BLOOD CREATININE INCREASED [None]
  - DIARRHOEA [None]
  - HYPONATRAEMIA [None]
  - PYREXIA [None]
  - RENAL FAILURE [None]
